FAERS Safety Report 5906706-7 (Version None)
Quarter: 2008Q3

REPORT INFORMATION
  Report Type: 
  Country: None (occurrence: None)
  Receive Date: 20080930
  Receipt Date: 20080919
  Transmission Date: 20090109
  Serious: Yes (Death)
  Sender: FDA-Public Use
  Company Number: 97958

PATIENT

DRUGS (1)
  1. IBUPROFEN [Suspect]
     Dosage: }20 G / ORAL
     Route: 048

REACTIONS (4)
  - OLIGURIA [None]
  - OVERDOSE [None]
  - REFUSAL OF TREATMENT BY PATIENT [None]
  - SEPSIS [None]
